FAERS Safety Report 20769307 (Version 1)
Quarter: 2022Q2

REPORT INFORMATION
  Report Type: Spontaneous
  Country: US (occurrence: US)
  Receive Date: 20220429
  Receipt Date: 20220429
  Transmission Date: 20220721
  Serious: Yes (Other)
  Sender: FDA-Public Use
  Company Number: US-GLAXOSMITHKLINE-US2022AMR070599

PATIENT
  Sex: Female

DRUGS (3)
  1. BENLYSTA [Suspect]
     Active Substance: BELIMUMAB
     Indication: Systemic lupus erythematosus
     Dosage: 200 MG/ML, WE
     Route: 058
     Dates: start: 202203
  2. BENLYSTA [Suspect]
     Active Substance: BELIMUMAB
     Indication: Osteoarthritis
  3. PHENTERMINE [Suspect]
     Active Substance: PHENTERMINE
     Indication: Product used for unknown indication
     Dosage: UNK

REACTIONS (4)
  - Systemic lupus erythematosus [Unknown]
  - Fatigue [Unknown]
  - Somnolence [Unknown]
  - Initial insomnia [Unknown]
